FAERS Safety Report 7034412-7 (Version None)
Quarter: 2010Q4

REPORT INFORMATION
  Report Type: 
  Country: None (occurrence: None)
  Receive Date: 20101008
  Receipt Date: 20101001
  Transmission Date: 20110411
  Serious: Yes (Death, Hospitalization, Disabling, Other)
  Sender: FDA-Public Use
  Company Number: US-TYCO HEALTHCARE/MALLINCKRODT-T201001877

PATIENT
  Sex: Male

DRUGS (16)
  1. OPTIMARK [Suspect]
     Indication: ANGIOGRAM
     Dosage: 50 ML, SINGLE
     Dates: start: 20030826, end: 20030826
  2. OPTIMARK [Suspect]
  3. OPTIMARK [Suspect]
  4. OMNISCAN [Suspect]
     Indication: ANGIOGRAM
     Dosage: 20 ML, SINGLE
     Dates: start: 19981120, end: 19981120
  5. OMNISCAN [Suspect]
     Dosage: 20 ML, SINGLE
     Dates: start: 20020531, end: 20020531
  6. OMNISCAN [Suspect]
     Indication: NUCLEAR MAGNETIC RESONANCE IMAGING
     Dosage: 20 ML, SINGLE
     Dates: start: 20030325, end: 20030325
  7. OMNISCAN [Suspect]
     Dosage: 20 ML, SINGLE
     Dates: start: 20050419, end: 20050419
  8. MAGNEVIST [Suspect]
     Indication: ANGIOGRAM
     Dosage: 18 ML, SINGLE
     Dates: start: 20051116, end: 20051116
  9. MAGNEVIST [Suspect]
     Dosage: 18 ML, SINGLE
     Dates: start: 20051118, end: 20051118
  10. MAGNEVIST [Suspect]
     Dosage: 18 ML, SINGLE
     Dates: start: 20051129, end: 20051129
  11. MAGNEVIST [Suspect]
     Indication: NUCLEAR MAGNETIC RESONANCE IMAGING
     Dosage: 40 ML, SINGLE
     Dates: start: 20051219, end: 20051219
  12. MAGNEVIST [Suspect]
     Dosage: 18 ML, SINGLE
     Dates: start: 20060923, end: 20060923
  13. GADOLINIUM [Suspect]
     Indication: AORTOGRAM
     Dosage: UNK
     Dates: start: 20020731, end: 20020731
  14. GADOLINIUM [Suspect]
     Indication: ANGIOGRAM
     Dosage: UNK
     Dates: start: 20031002, end: 20031002
  15. GADOLINIUM [Suspect]
     Dosage: UNK
     Dates: start: 20050420, end: 20050420
  16. GADOLINIUM [Suspect]
     Dosage: UNK
     Dates: start: 20050615, end: 20050615

REACTIONS (32)
  - ABASIA [None]
  - ARTHRALGIA [None]
  - ATELECTASIS [None]
  - ATRIAL FIBRILLATION [None]
  - BLISTER [None]
  - DRUG PRESCRIBING ERROR [None]
  - DYSPHAGIA [None]
  - DYSPHONIA [None]
  - DYSPNOEA [None]
  - EMPHYSEMA [None]
  - ERYTHEMA [None]
  - EXCORIATION [None]
  - FEMORAL ARTERY OCCLUSION [None]
  - FLUID RETENTION [None]
  - GANGRENE [None]
  - HYPERADRENALISM [None]
  - HYPERPARATHYROIDISM SECONDARY [None]
  - HYPOAESTHESIA [None]
  - JOINT SWELLING [None]
  - MYOCARDIAL INFARCTION [None]
  - NEPHROGENIC SYSTEMIC FIBROSIS [None]
  - OFF LABEL USE [None]
  - OROPHARYNGEAL PAIN [None]
  - OSTEOARTHRITIS [None]
  - PERIPHERAL ISCHAEMIA [None]
  - PLEURAL EFFUSION [None]
  - PULMONARY GRANULOMA [None]
  - RENAL FAILURE CHRONIC [None]
  - RESTLESS LEGS SYNDROME [None]
  - SKIN NECROSIS [None]
  - URINARY RETENTION [None]
  - VENTRICULAR TACHYCARDIA [None]
